FAERS Safety Report 5442295-1 (Version None)
Quarter: 2007Q3

REPORT INFORMATION
  Report Type: 
  Country: None (occurrence: None)
  Receive Date: 20070731
  Receipt Date: 20070613
  Transmission Date: 20080115
  Serious: No
  Sender: FDA-Public Use
  Company Number: US200706003161

PATIENT
  Age: 62 Year
  Sex: Male

DRUGS (8)
  1. BYETTA [Suspect]
     Indication: TYPE 2 DIABETES MELLITUS
     Dosage: SEE IMAGE
     Route: 058
     Dates: start: 20061218, end: 20070101
  2. BYETTA [Suspect]
     Indication: TYPE 2 DIABETES MELLITUS
     Dosage: SEE IMAGE
     Route: 058
     Dates: start: 20070101, end: 20070129
  3. BYETTA [Suspect]
     Indication: TYPE 2 DIABETES MELLITUS
     Dosage: SEE IMAGE
     Route: 058
     Dates: start: 20070101
  4. BYETTA [Suspect]
     Indication: TYPE 2 DIABETES MELLITUS
     Dosage: SEE IMAGE
     Route: 058
     Dates: start: 20070129
  5. EXENATIDE (EXENATIDE PEN) [Concomitant]
  6. ZOLOFT [Concomitant]
  7. TRICOR [Concomitant]
  8. CRESTOR [Concomitant]

REACTIONS (4)
  - BLOOD TRIGLYCERIDES INCREASED [None]
  - HIGH DENSITY LIPOPROTEIN DECREASED [None]
  - NAUSEA [None]
  - WEIGHT INCREASED [None]
